FAERS Safety Report 8854163 (Version 1)
Quarter: 2012Q4

REPORT INFORMATION
  Report Type: Spontaneous
  Country: US (occurrence: None)
  Receive Date: 20121018
  Receipt Date: 20121018
  Transmission Date: 20130627
  Serious: Yes (Hospitalization)
  Sender: FDA-Public Use
  Company Number: 2012ST000699

PATIENT
  Age: 12 Year
  Sex: Male

DRUGS (7)
  1. ONCASPAR [Suspect]
     Indication: ACUTE LYMPHOCYTIC LEUKEMIA
     Dates: start: 20120808, end: 20120808
  2. DASATINIB [Suspect]
     Indication: ACUTE LYMPHOCYTIC LEUKEMIA
     Route: 048
     Dates: start: 20120822
  3. VINCRISTINE [Suspect]
     Indication: ACUTE LYMPHOCYTIC LEUKEMIA
     Route: 042
     Dates: start: 20120808
  4. DAUNORUBICIN [Suspect]
     Indication: ACUTE LYMPHOCYTIC LEUKEMIA
     Route: 042
     Dates: start: 20120808, end: 20120829
  5. BACTRIM [Concomitant]
  6. RANITIDINE [Concomitant]
  7. NYSTATIN [Concomitant]

REACTIONS (3)
  - Febrile neutropenia [None]
  - Anaemia [None]
  - Thrombocytopenia [None]
